FAERS Safety Report 5359971-1 (Version None)
Quarter: 2007Q2

REPORT INFORMATION
  Report Type: 
  Country: None (occurrence: None)
  Receive Date: 20070617
  Receipt Date: 20070605
  Transmission Date: 20071010
  Serious: Yes (Hospitalization)
  Sender: FDA-Public Use
  Company Number: BR-JNJFOC-20070601914

PATIENT
  Sex: Male
  Weight: 43.6 kg

DRUGS (5)
  1. REMICADE [Suspect]
     Indication: SPONDYLITIS
     Route: 042
  2. METHOTREXATE [Concomitant]
     Indication: SPONDYLITIS
     Route: 048
  3. INDOMETHACIN [Concomitant]
     Indication: SPONDYLITIS
     Route: 048
  4. FOLIC ACID [Concomitant]
     Route: 048
  5. ISONIAZID [Concomitant]
     Route: 048

REACTIONS (1)
  - LYMPHOCYTIC LEUKAEMIA [None]
